FAERS Safety Report 5061160-5 (Version None)
Quarter: 2006Q3

REPORT INFORMATION
  Report Type: 
  Country: None (occurrence: None)
  Receive Date: 20060720
  Receipt Date: 20060712
  Transmission Date: 20061208
  Serious: Yes (Other)
  Sender: FDA-Public Use
  Company Number: USA-2006-0024602

PATIENT
  Age: 55 Year
  Sex: Female

DRUGS (1)
  1. OXYCONTIN [Suspect]
     Indication: FIBROMYALGIA
     Dosage: 20 MG, BID, ORAL
     Route: 048
     Dates: start: 20040101

REACTIONS (8)
  - ABDOMINAL INJURY [None]
  - ANGER [None]
  - CHEST INJURY [None]
  - GUN SHOT WOUND [None]
  - INADEQUATE ANALGESIA [None]
  - INTENTIONAL SELF-INJURY [None]
  - SUICIDAL IDEATION [None]
  - SUICIDE ATTEMPT [None]
